FAERS Safety Report 10468406 (Version 1)
Quarter: 2014Q3

REPORT INFORMATION
  Report Type: Spontaneous
  Country: US (occurrence: US)
  Receive Date: 20140922
  Receipt Date: 20140922
  Transmission Date: 20150326
  Serious: No
  Sender: FDA-Public Use
  Company Number: US-ALLERGAN-1402320US

PATIENT
  Sex: Female

DRUGS (3)
  1. BABY ASA [Concomitant]
     Active Substance: ASPIRIN
     Indication: PRODUCT USED FOR UNKNOWN INDICATION
  2. LASTACAFT [Suspect]
     Active Substance: ALCAFTADINE
     Indication: CONJUNCTIVITIS ALLERGIC
     Dosage: 2 GTT, SINGLE
     Route: 047
     Dates: start: 20140131, end: 20140131
  3. PATADAY [Concomitant]
     Active Substance: OLOPATADINE HYDROCHLORIDE
     Indication: CONJUNCTIVITIS ALLERGIC
     Dosage: UNK
     Dates: start: 20140131

REACTIONS (5)
  - Blepharospasm [Recovered/Resolved]
  - Lagophthalmos [Recovered/Resolved]
  - Chest discomfort [Recovered/Resolved]
  - Erythema of eyelid [Not Recovered/Not Resolved]
  - Insomnia [Recovered/Resolved]
